FAERS Safety Report 24806692 (Version 2)
Quarter: 2025Q1

REPORT INFORMATION
  Report Type: Spontaneous
  Country: PT (occurrence: PT)
  Receive Date: 20250104
  Receipt Date: 20250113
  Transmission Date: 20250408
  Serious: Yes (Hospitalization, Other)
  Sender: AUROBINDO
  Company Number: PT-PFIZER INC-PV202400164133

PATIENT
  Age: 77 Year
  Sex: Female

DRUGS (2)
  1. BENDAMUSTINE [Suspect]
     Active Substance: BENDAMUSTINE
     Indication: Non-Hodgkin^s lymphoma recurrent
     Route: 065
     Dates: start: 202009
  2. RITUXIMAB [Suspect]
     Active Substance: RITUXIMAB
     Indication: Non-Hodgkin^s lymphoma recurrent
     Route: 065
     Dates: start: 202009

REACTIONS (2)
  - COVID-19 [Unknown]
  - COVID-19 pneumonia [Not Recovered/Not Resolved]
